FAERS Safety Report 10470414 (Version 1)
Quarter: 2014Q3

REPORT INFORMATION
  Report Type: Spontaneous
  Country: US (occurrence: None)
  Receive Date: 20140909
  Receipt Date: 20140909
  Transmission Date: 20150326
  Serious: Yes (Other)
  Sender: FDA-Public Use
  Company Number: 1366971

PATIENT
  Age: 68 Year
  Sex: Male

DRUGS (2)
  1. LUCENTIS [Suspect]
     Active Substance: RANIBIZUMAB
     Indication: MACULAR DEGENERATION
     Dosage: DATE OF LAST DOSE PRIOR TO SAE: 11/MAR/2014
  2. LUCENTIS [Suspect]
     Active Substance: RANIBIZUMAB
     Indication: VENOUS OCCLUSION
     Dosage: DATE OF LAST DOSE PRIOR TO SAE: 11/MAR/2014

REACTIONS (2)
  - Uveitis [None]
  - Product quality issue [None]

NARRATIVE: CASE EVENT DATE: 20140313
